FAERS Safety Report 9220552 (Version 10)
Quarter: 2015Q3

REPORT INFORMATION
  Report Type: Spontaneous
  Country: US (occurrence: US)
  Receive Date: 20130409
  Receipt Date: 20150710
  Transmission Date: 20151125
  Serious: Yes (Hospitalization, Disabling, Other)
  Sender: FDA-Public Use
  Company Number: US-009507513-1304USA003830

PATIENT
  Sex: Male
  Weight: 95.69 kg

DRUGS (4)
  1. FINASTERIDE. [Suspect]
     Active Substance: FINASTERIDE
     Route: 048
  2. PROPECIA [Suspect]
     Active Substance: FINASTERIDE
     Indication: ANDROGENETIC ALOPECIA
     Dosage: 1 MG, UNK
     Route: 048
     Dates: end: 2005
  3. PROSCAR [Suspect]
     Active Substance: FINASTERIDE
     Route: 048
  4. TESTOSTERONE. [Suspect]
     Active Substance: TESTOSTERONE
     Indication: PRODUCT USED FOR UNKNOWN INDICATION

REACTIONS (67)
  - Basal cell carcinoma [Unknown]
  - Vision blurred [Unknown]
  - Transaminases increased [Unknown]
  - Feelings of worthlessness [Unknown]
  - Osteoma [Unknown]
  - Spinal compression fracture [Unknown]
  - Vomiting [Recovered/Resolved]
  - Acquired oesophageal web [Unknown]
  - Testicular failure [Unknown]
  - Spinal osteoarthritis [Unknown]
  - Tendon rupture [Unknown]
  - Osteoma [Unknown]
  - Blindness unilateral [Unknown]
  - Anxiety [Unknown]
  - Dyslipidaemia [Unknown]
  - Libido decreased [Unknown]
  - Colitis [Unknown]
  - Tendon operation [Unknown]
  - Headache [Recovered/Resolved]
  - Paraesthesia [Recovered/Resolved]
  - Lymphadenopathy [Unknown]
  - Benign breast lump removal [Unknown]
  - Biopsy [Unknown]
  - Hypoaesthesia [Unknown]
  - Prostatitis [Unknown]
  - Urine flow decreased [Unknown]
  - Folliculitis [Unknown]
  - Gastrooesophageal reflux disease [Unknown]
  - Upper respiratory tract infection [Recovered/Resolved]
  - Gynaecomastia [Not Recovered/Not Resolved]
  - Depression [Unknown]
  - Arachnoid cyst [Unknown]
  - Prostatic specific antigen increased [Unknown]
  - Premature ejaculation [Unknown]
  - Asthma [Unknown]
  - Anaemia [Unknown]
  - Blood testosterone decreased [Unknown]
  - Oesophagitis [Unknown]
  - Tendon discomfort [Unknown]
  - Cancer surgery [Unknown]
  - Migraine [Recovered/Resolved]
  - Hypertension [Unknown]
  - Polycythaemia [Unknown]
  - Obesity [Unknown]
  - Sexual dysfunction [Not Recovered/Not Resolved]
  - Haematuria [Recovering/Resolving]
  - Tendon rupture [Unknown]
  - Squamous cell carcinoma [Unknown]
  - Migraine [Unknown]
  - Cerebrovascular accident [Unknown]
  - Blood cholesterol increased [Unknown]
  - Arthritis [Unknown]
  - Hiatus hernia [Unknown]
  - Polycythaemia [Recovered/Resolved]
  - Benign prostatic hyperplasia [Unknown]
  - Abscess [Unknown]
  - Barrett^s oesophagus [Unknown]
  - Prostatitis [Unknown]
  - Migraine [Not Recovered/Not Resolved]
  - Pancreatitis [Recovered/Resolved]
  - Abscess limb [Recovering/Resolving]
  - Skin neoplasm excision [Unknown]
  - Peyronie^s disease [Recovered/Resolved]
  - Dysuria [Unknown]
  - Dizziness [Unknown]
  - Erectile dysfunction [Unknown]
  - Herpes simplex [Unknown]

NARRATIVE: CASE EVENT DATE: 1996
